FAERS Safety Report 6023272-9 (Version None)
Quarter: 2008Q4

REPORT INFORMATION
  Report Type: 
  Country: None (occurrence: None)
  Receive Date: 20081223
  Receipt Date: 20081212
  Transmission Date: 20090506
  Serious: Yes (Death, Hospitalization)
  Sender: FDA-Public Use
  Company Number: 2008003243

PATIENT
  Age: 61 Year
  Sex: Male

DRUGS (6)
  1. TARCEVA [Suspect]
     Indication: LUNG ADENOCARCINOMA
     Dosage: (150 MG, QD) ,ORAL
     Route: 048
     Dates: start: 20071116, end: 20071221
  2. VASTAREL [Suspect]
     Dosage: ORAL
     Route: 048
     Dates: end: 20071129
  3. TADENAN (PYGEUM AFRICANUM) [Concomitant]
  4. LYRICA [Concomitant]
  5. AMITRIPTYLINE HCL [Concomitant]
  6. OMEPRAZOLE [Concomitant]

REACTIONS (2)
  - INTRACRANIAL PRESSURE INCREASED [None]
  - THROMBOCYTOPENIA [None]
